FAERS Safety Report 6291880-6 (Version None)
Quarter: 2009Q3

REPORT INFORMATION
  Report Type: 
  Country: None (occurrence: None)
  Receive Date: 20090729
  Receipt Date: 20090717
  Transmission Date: 20100115
  Serious: Yes (Other)
  Sender: FDA-Public Use
  Company Number: 233176K08USA

PATIENT
  Age: 55 Year
  Sex: Female
  Weight: 103 kg

DRUGS (6)
  1. REBIF [Suspect]
     Indication: MULTIPLE SCLEROSIS
     Dosage: 44 MCG, 3 IN 1 WEEKS, SUBCUTANEOUS
     Route: 058
     Dates: start: 20080122, end: 20090301
  2. LIPITOR [Concomitant]
  3. TOPROL-XL [Concomitant]
  4. ASPIRIN [Concomitant]
  5. BENICAR [Concomitant]
  6. DEPAKOTE [Concomitant]

REACTIONS (1)
  - DIABETES MELLITUS [None]
